FAERS Safety Report 18549322 (Version 2)
Quarter: 2020Q4

REPORT INFORMATION
  Report Type: Spontaneous
  Country: DE (occurrence: DE)
  Receive Date: 20201126
  Receipt Date: 20201221
  Transmission Date: 20210114
  Serious: Yes (Hospitalization, Other)
  Sender: FDA-Public Use
  Company Number: DE-GLENMARK PHARMACEUTICALS-2020GMK050584

PATIENT
  Age: 71 Year
  Sex: Female

DRUGS (3)
  1. LINEZOLID. [Suspect]
     Active Substance: LINEZOLID
     Indication: ENTEROCOCCAL INFECTION
  2. LINEZOLID. [Suspect]
     Active Substance: LINEZOLID
     Indication: NOSOCOMIAL INFECTION
     Dosage: UNK
     Route: 065
  3. LINEZOLID. [Suspect]
     Active Substance: LINEZOLID
     Indication: LIVER ABSCESS

REACTIONS (2)
  - Genotype drug resistance test positive [Unknown]
  - Drug resistance [Unknown]
